FAERS Safety Report 17833202 (Version 1)
Quarter: 2020Q2

REPORT INFORMATION
  Report Type: Spontaneous
  Country: US (occurrence: US)
  Receive Date: 20200528
  Receipt Date: 20200528
  Transmission Date: 20200714
  Serious: Yes (Other)
  Sender: FDA-Public Use
  Company Number: US-STRIDES ARCOLAB LIMITED-2020SP001362

PATIENT
  Age: 56 Year
  Sex: Male

DRUGS (20)
  1. VANCOMYCIN [Suspect]
     Active Substance: VANCOMYCIN
     Indication: ANTIBIOTIC THERAPY
  2. VANCOMYCIN [Suspect]
     Active Substance: VANCOMYCIN
     Indication: BETA HAEMOLYTIC STREPTOCOCCAL INFECTION
  3. LINEZOLID. [Suspect]
     Active Substance: LINEZOLID
     Indication: ANTIBIOTIC THERAPY
  4. CLINDAMYCIN. [Suspect]
     Active Substance: CLINDAMYCIN
     Indication: ANTIBIOTIC THERAPY
  5. PIPERACILIN/TAZOBACTAM [Suspect]
     Active Substance: PIPERACILLIN SODIUM\TAZOBACTAM SODIUM
     Indication: NECROTISING FASCIITIS
     Dosage: UNK
     Route: 065
  6. CEFTRIAXONE. [Suspect]
     Active Substance: CEFTRIAXONE
     Indication: ANTIBIOTIC THERAPY
  7. CLINDAMYCIN. [Suspect]
     Active Substance: CLINDAMYCIN
     Indication: OSTEOMYELITIS
  8. CEFTRIAXONE. [Suspect]
     Active Substance: CEFTRIAXONE
     Indication: NECROTISING FASCIITIS
     Dosage: UNK
     Route: 065
  9. LINEZOLID. [Suspect]
     Active Substance: LINEZOLID
     Indication: NECROTISING FASCIITIS
     Dosage: UNK
     Route: 065
  10. LINEZOLID. [Suspect]
     Active Substance: LINEZOLID
     Indication: OSTEOMYELITIS
  11. PIPERACILIN/TAZOBACTAM [Suspect]
     Active Substance: PIPERACILLIN SODIUM\TAZOBACTAM SODIUM
     Indication: OSTEOMYELITIS
  12. PIPERACILIN/TAZOBACTAM [Suspect]
     Active Substance: PIPERACILLIN SODIUM\TAZOBACTAM SODIUM
     Indication: BETA HAEMOLYTIC STREPTOCOCCAL INFECTION
  13. CEFTRIAXONE. [Suspect]
     Active Substance: CEFTRIAXONE
     Indication: BETA HAEMOLYTIC STREPTOCOCCAL INFECTION
  14. VANCOMYCIN [Suspect]
     Active Substance: VANCOMYCIN
     Indication: NECROTISING FASCIITIS
     Dosage: UNK
     Route: 065
  15. VANCOMYCIN [Suspect]
     Active Substance: VANCOMYCIN
     Indication: OSTEOMYELITIS
  16. CLINDAMYCIN. [Suspect]
     Active Substance: CLINDAMYCIN
     Indication: BETA HAEMOLYTIC STREPTOCOCCAL INFECTION
  17. CEFTRIAXONE. [Suspect]
     Active Substance: CEFTRIAXONE
     Indication: OSTEOMYELITIS
  18. CLINDAMYCIN. [Suspect]
     Active Substance: CLINDAMYCIN
     Indication: NECROTISING FASCIITIS
     Dosage: UNK
     Route: 065
  19. LINEZOLID. [Suspect]
     Active Substance: LINEZOLID
     Indication: BETA HAEMOLYTIC STREPTOCOCCAL INFECTION
  20. PIPERACILIN/TAZOBACTAM [Suspect]
     Active Substance: PIPERACILLIN SODIUM\TAZOBACTAM SODIUM
     Indication: ANTIBIOTIC THERAPY

REACTIONS (1)
  - Drug ineffective for unapproved indication [Unknown]
